FAERS Safety Report 7323065-6 (Version None)
Quarter: 2011Q1

REPORT INFORMATION
  Report Type: 
  Country: None (occurrence: None)
  Receive Date: 20110301
  Receipt Date: 20110223
  Transmission Date: 20110831
  Serious: Yes (Other)
  Sender: FDA-Public Use
  Company Number: PHHY2011CN15961

PATIENT
  Age: 25 Year
  Sex: Male

DRUGS (2)
  1. TEGRETOL [Suspect]
     Indication: EPILEPSY
     Dosage: 300 MG, BID
     Route: 048
     Dates: start: 20040101
  2. TEGRETOL [Suspect]
     Dosage: 100 MG, QD
     Route: 048

REACTIONS (1)
  - HYPERTENSION [None]
